APPROVED DRUG PRODUCT: DEFEROXAMINE MESYLATE
Active Ingredient: DEFEROXAMINE MESYLATE
Strength: 2GM/VIAL
Dosage Form/Route: INJECTABLE;INJECTION
Application: A207384 | Product #002 | TE Code: AP
Applicant: GLAND PHARMA LTD
Approved: Sep 29, 2017 | RLD: No | RS: No | Type: RX